FAERS Safety Report 9592932 (Version 1)
Quarter: 2013Q4

REPORT INFORMATION
  Report Type: Spontaneous
  Country: GB (occurrence: None)
  Receive Date: 20131002
  Receipt Date: 20131002
  Transmission Date: 20140711
  Serious: Yes (Hospitalization, Other)
  Sender: FDA-Public Use
  Company Number: 2013RR-73085

PATIENT
  Age: 44 Year
  Sex: Male

DRUGS (2)
  1. ATORVASTATIN [Suspect]
     Indication: HYPERCHOLESTEROLAEMIA
     Dosage: (20 MG, UNKNWOWN)
  2. NITROGLYCERINE (NITROGLYCERINE) SPRAY [Concomitant]

REACTIONS (2)
  - Thrombocytopenic purpura [None]
  - Neutrophilia [None]
